FAERS Safety Report 14772960 (Version 1)
Quarter: 2018Q2

REPORT INFORMATION
  Report Type: Report from Study
  Country: US (occurrence: US)
  Receive Date: 20180418
  Receipt Date: 20180418
  Transmission Date: 20180711
  Serious: Yes (Other)
  Sender: FDA-Public Use
  Company Number: US-CIPLA LTD.-2018US04913

PATIENT

DRUGS (1)
  1. IRINOTECAN [Suspect]
     Active Substance: IRINOTECAN
     Indication: COLORECTAL CANCER METASTATIC
     Dosage: 350 MG/M2, OVER 90 MIN EVERY 21 DAYS
     Route: 042

REACTIONS (30)
  - Diarrhoea [Unknown]
  - Nausea [Unknown]
  - Dizziness [Unknown]
  - Pyrexia [Unknown]
  - Leukopenia [Unknown]
  - Abdominal pain upper [Unknown]
  - Febrile neutropenia [Unknown]
  - Asthenia [Unknown]
  - Haemoglobin decreased [Unknown]
  - Intestinal obstruction [Unknown]
  - Colitis [Unknown]
  - Hypokalaemia [Unknown]
  - Vision blurred [Unknown]
  - Decreased appetite [Unknown]
  - Constipation [Unknown]
  - Weight decreased [Unknown]
  - Headache [Unknown]
  - Malignant neoplasm progression [Unknown]
  - Lethargy [Unknown]
  - Treatment noncompliance [Unknown]
  - Abdominal distension [Unknown]
  - Fatigue [Unknown]
  - Dehydration [Unknown]
  - Neutropenia [Unknown]
  - Alopecia [Unknown]
  - Anaemia [Unknown]
  - Hyperbilirubinaemia [Unknown]
  - Hyponatraemia [Unknown]
  - Vomiting [Unknown]
  - Abdominal pain [Unknown]
